FAERS Safety Report 13631755 (Version 1)
Quarter: 2017Q2

REPORT INFORMATION
  Report Type: Spontaneous
  Country: US (occurrence: US)
  Receive Date: 20170531
  Receipt Date: 20170531
  Transmission Date: 20170830
  Serious: No
  Sender: FDA-Public Use
  Company Number: US-ASTELLAS-1412077

PATIENT
  Sex: Male

DRUGS (2)
  1. TARCEVA [Suspect]
     Active Substance: ERLOTINIB HYDROCHLORIDE
     Indication: PRODUCT USED FOR UNKNOWN INDICATION
     Route: 065
  2. RADIATION [Concomitant]
     Active Substance: RADIATION THERAPY
     Route: 065

REACTIONS (9)
  - Cough [Unknown]
  - Stomatitis [Unknown]
  - Rash [Unknown]
  - Eye disorder [Unknown]
  - Diarrhoea [Unknown]
  - Fatigue [Unknown]
  - Ulcer [Unknown]
  - Haematochezia [Unknown]
  - Oral mucosal blistering [Unknown]
